FAERS Safety Report 7206454-X (Version None)
Quarter: 2010Q4

REPORT INFORMATION
  Report Type: 
  Country: None (occurrence: None)
  Receive Date: 20101217
  Receipt Date: 20101205
  Transmission Date: 20110411
  Serious: Yes (Congenital Anomaly)
  Sender: FDA-Public Use
  Company Number: AUR-APL-2010-03045

PATIENT

DRUGS (2)
  1. SERTRALINE [Suspect]
     Indication: DEPRESSION
     Dosage: 50MG, QD,TRANSPLACENTAL
     Route: 064
     Dates: start: 20101027
  2. SERTRALINE [Suspect]
     Dosage: 100MG,OD,TRANSPLACENTAL
     Route: 064
     Dates: end: 20101027

REACTIONS (3)
  - ABORTION INDUCED [None]
  - ANENCEPHALY [None]
  - MATERNAL DRUGS AFFECTING FOETUS [None]
